FAERS Safety Report 6065042-1 (Version None)
Quarter: 2009Q1

REPORT INFORMATION
  Report Type: 
  Country: None (occurrence: None)
  Receive Date: 20090204
  Receipt Date: 20090123
  Transmission Date: 20090719
  Serious: Yes (Hospitalization)
  Sender: FDA-Public Use
  Company Number: BR-TEVA-184765ISR

PATIENT
  Sex: Female

DRUGS (8)
  1. BECLOMETASONE [Suspect]
     Indication: EMPHYSEMA
     Dosage: 1 DF 2 EVERY 1 DAY
     Route: 055
  2. FORMOTEROL FUMARATE [Concomitant]
  3. FENOTEROL HYDROBROMIDE [Concomitant]
  4. ENALAPRIL MALEATE [Concomitant]
  5. IPRATROPIUM BROMIDE [Concomitant]
  6. HYDROCHLOROTHIAZIDE [Concomitant]
  7. GLIBENCLAMIDE [Concomitant]
  8. FORASEQ [Concomitant]

REACTIONS (7)
  - CYANOSIS [None]
  - FALL [None]
  - FATIGUE [None]
  - FEELING COLD [None]
  - HEART RATE INCREASED [None]
  - LOSS OF CONSCIOUSNESS [None]
  - PSORIASIS [None]
